FAERS Safety Report 17440532 (Version 2)
Quarter: 2020Q2

REPORT INFORMATION
  Report Type: Spontaneous
  Country: US (occurrence: US)
  Receive Date: 20200220
  Receipt Date: 20200506
  Transmission Date: 20200713
  Serious: Yes (Hospitalization)
  Sender: FDA-Public Use
  Company Number: US-PFIZER INC-2020075643

PATIENT
  Age: 66 Year
  Sex: Male
  Weight: 78.01 kg

DRUGS (6)
  1. BACLOFEN. [Concomitant]
     Active Substance: BACLOFEN
     Dosage: 20 MG
  2. OXYCODONE [Concomitant]
     Active Substance: OXYCODONE
     Dosage: 30 MG
  3. XALKORI [Suspect]
     Active Substance: CRIZOTINIB
     Indication: LUNG NEOPLASM MALIGNANT
     Dosage: 250 MG, 2X/DAY
     Dates: start: 20200204
  4. MECLIZINE [Concomitant]
     Active Substance: MECLIZINE HYDROCHLORIDE
     Dosage: 1.5 MG
     Dates: start: 202003
  5. ATORVASTATIN [Concomitant]
     Active Substance: ATORVASTATIN
     Dosage: 80 MG
     Dates: start: 202001
  6. PREGABALIN. [Concomitant]
     Active Substance: PREGABALIN
     Dosage: 50 MG
     Dates: start: 20200408

REACTIONS (3)
  - Nausea [Unknown]
  - Dizziness [Unknown]
  - Limb injury [Recovered/Resolved]
